FAERS Safety Report 9335524 (Version 1)
Quarter: 2013Q2

REPORT INFORMATION
  Report Type: Spontaneous
  Country: CA (occurrence: CA)
  Receive Date: 20130605
  Receipt Date: 20130605
  Transmission Date: 20140414
  Serious: Yes (Other)
  Sender: FDA-Public Use
  Company Number: CA-GLAXOSMITHKLINE-A1000800A

PATIENT
  Age: 61 Year
  Sex: Female

DRUGS (13)
  1. TYKERB [Suspect]
     Indication: BREAST CANCER METASTATIC
     Dosage: 1250MG PER DAY
     Route: 048
     Dates: start: 20121101, end: 20130517
  2. XELODA [Suspect]
     Indication: PRODUCT USED FOR UNKNOWN INDICATION
     Dosage: 1500MG TWICE PER DAY
     Route: 065
     Dates: end: 20121108
  3. CALCIUM [Concomitant]
  4. VITAMIN D [Concomitant]
  5. METFORMIN [Concomitant]
  6. HYDROMORPH CONTIN [Concomitant]
  7. VENLAFAXINE [Concomitant]
  8. PANTOPRAZOLE [Concomitant]
  9. DOCUSATE [Concomitant]
  10. SENOKOT [Concomitant]
  11. TRAZODONE [Concomitant]
  12. HYDROMORPHONE [Concomitant]
  13. VITAMIN B6 [Concomitant]

REACTIONS (5)
  - Nausea [Recovered/Resolved]
  - Vomiting [Recovered/Resolved]
  - Constipation [Not Recovered/Not Resolved]
  - Malignant neoplasm progression [Unknown]
  - Drug ineffective [Unknown]
